FAERS Safety Report 12637466 (Version 1)
Quarter: 2016Q3

REPORT INFORMATION
  Report Type: Spontaneous
  Country: US (occurrence: US)
  Receive Date: 20160809
  Receipt Date: 20160809
  Transmission Date: 20161109
  Serious: No
  Sender: FDA-Public Use
  Company Number: US-BEH-2016062839

PATIENT
  Sex: Male
  Weight: 95 kg

DRUGS (10)
  1. DEXTROSE. [Concomitant]
     Active Substance: DEXTROSE
  2. EPIPEN [Concomitant]
     Active Substance: EPINEPHRINE
  3. PRIVIGEN [Suspect]
     Active Substance: HUMAN IMMUNOGLOBULIN G
     Indication: CHRONIC INFLAMMATORY DEMYELINATING POLYRADICULONEUROPATHY
     Route: 042
     Dates: start: 20131213
  4. MELOXICAM. [Concomitant]
     Active Substance: MELOXICAM
  5. PAROXETINE. [Concomitant]
     Active Substance: PAROXETINE
  6. ACETAMINOPHEN. [Concomitant]
     Active Substance: ACETAMINOPHEN
  7. SODIUM CHLORIDE. [Concomitant]
     Active Substance: SODIUM CHLORIDE
  8. ASPIRIN. [Concomitant]
     Active Substance: ASPIRIN
  9. DIPHENHYDRAMINE. [Concomitant]
     Active Substance: DIPHENHYDRAMINE
  10. LISINOPRIL. [Concomitant]
     Active Substance: LISINOPRIL

REACTIONS (2)
  - Rash macular [Unknown]
  - Erythema [Unknown]
